FAERS Safety Report 9217654 (Version 2)
Quarter: 2013Q2

REPORT INFORMATION
  Report Type: Spontaneous
  Country: GB (occurrence: GB)
  Receive Date: 20130408
  Receipt Date: 20130502
  Transmission Date: 20140414
  Serious: Yes (Hospitalization)
  Sender: FDA-Public Use
  Company Number: GB-ROCHE-1211218

PATIENT
  Sex: Female
  Weight: 62.8 kg

DRUGS (8)
  1. AVASTIN [Suspect]
     Indication: COLORECTAL CANCER METASTATIC
     Route: 042
     Dates: start: 20130325
  2. OXYNORM [Concomitant]
     Indication: BACK PAIN
  3. OXYCONTIN [Concomitant]
     Indication: BACK PAIN
  4. PARACETAMOL [Concomitant]
     Indication: BACK PAIN
  5. XELODA [Concomitant]
     Route: 065
  6. OXALIPLATIN [Concomitant]
  7. IRINOTECAN [Concomitant]
  8. MITOMYCIN C [Concomitant]

REACTIONS (8)
  - Hypertension [Recovering/Resolving]
  - Headache [Unknown]
  - Anxiety [Unknown]
  - Renal disorder [Unknown]
  - Blood alkaline phosphatase increased [Unknown]
  - Pain [Unknown]
  - Local swelling [Unknown]
  - Constipation [Unknown]
